FAERS Safety Report 9454006 (Version 1)
Quarter: 2013Q3

REPORT INFORMATION
  Report Type: Spontaneous
  Country: US (occurrence: None)
  Receive Date: 20130809
  Receipt Date: 20130809
  Transmission Date: 20140515
  Serious: No
  Sender: FDA-Public Use
  Company Number: None

PATIENT
  Age: 40 Year
  Sex: Female

DRUGS (1)
  1. PROLIA [Suspect]
     Dosage: TO BE ADMINISTERED IN PHYSICIANS OFFICE INJECT 60MG (1ML) SUBCUTANEOUSLY EVERY 6 MONTHS
     Route: 058

REACTIONS (5)
  - Rash erythematous [None]
  - Rash pruritic [None]
  - Burning sensation [None]
  - Skin exfoliation [None]
  - Dry skin [None]
